FAERS Safety Report 5747589-8 (Version None)
Quarter: 2008Q2

REPORT INFORMATION
  Report Type: 
  Country: None (occurrence: None)
  Receive Date: 20080523
  Receipt Date: 20080523
  Transmission Date: 20081010
  Serious: Yes (Death)
  Sender: FDA-Public Use
  Company Number: None

PATIENT
  Age: 72 Year
  Sex: Female
  Weight: 94 kg

DRUGS (2)
  1. HEPARIN [Suspect]
     Indication: HEART VALVE OPERATION
     Dosage: ^30^ IV, 30K IV ADDTL 50K 02-13-08 @ 1030, 1345, UNKNOWN TIMES
     Route: 042
     Dates: start: 20080213
  2. TERUMO OXYGENATOR AND TUBING PACK [Concomitant]

REACTIONS (4)
  - AORTIC VALVE INCOMPETENCE [None]
  - DISEASE PROGRESSION [None]
  - EJECTION FRACTION DECREASED [None]
  - NO THERAPEUTIC RESPONSE [None]
